FAERS Safety Report 10638866 (Version 3)
Quarter: 2015Q2

REPORT INFORMATION
  Report Type: Report from Study
  Country: US (occurrence: US)
  Receive Date: 20141208
  Receipt Date: 20150429
  Transmission Date: 20150821
  Serious: Yes (Hospitalization, Other)
  Sender: FDA-Public Use
  Company Number: US-GILEAD-2014-0125995

PATIENT
  Age: 64 Year
  Sex: Female

DRUGS (11)
  1. AMBRISENTAN [Suspect]
     Active Substance: AMBRISENTAN
     Indication: CONNECTIVE TISSUE DISORDER
  2. PANTOPRAZOLE [Concomitant]
     Active Substance: PANTOPRAZOLE SODIUM
  3. MESALAMINE. [Concomitant]
     Active Substance: MESALAMINE
  4. METOLAZONE. [Concomitant]
     Active Substance: METOLAZONE
  5. WARFARIN [Concomitant]
     Active Substance: WARFARIN
  6. AMBRISENTAN [Suspect]
     Active Substance: AMBRISENTAN
     Indication: CARDIORENAL SYNDROME
     Dosage: 10 MG, QD
     Route: 048
     Dates: start: 200906
  7. LISINOPRIL. [Concomitant]
     Active Substance: LISINOPRIL
  8. SPIRONOLACTONE. [Concomitant]
     Active Substance: SPIRONOLACTONE
  9. AMBRISENTAN [Suspect]
     Active Substance: AMBRISENTAN
     Indication: PULMONARY HYPERTENSION
     Dosage: 5 MG, QD
     Route: 048
     Dates: start: 20150227, end: 20150325
  10. ATORVASTATIN [Concomitant]
     Active Substance: ATORVASTATIN
  11. AMBRISENTAN [Suspect]
     Active Substance: AMBRISENTAN
     Indication: HEART DISEASE CONGENITAL

REACTIONS (11)
  - Nausea [Unknown]
  - Cardiorenal syndrome [Unknown]
  - Pulmonary oedema [Unknown]
  - Dialysis [Unknown]
  - Faeces discoloured [Unknown]
  - Asthenia [Unknown]
  - Renal failure [Unknown]
  - Acute kidney injury [Unknown]
  - Malaise [Unknown]
  - Fluid overload [Unknown]
  - Fluid retention [Unknown]

NARRATIVE: CASE EVENT DATE: 20141115
